FAERS Safety Report 9923664 (Version 2)
Quarter: 2014Q1

REPORT INFORMATION
  Report Type: Spontaneous
  Country: US (occurrence: US)
  Receive Date: 20140225
  Receipt Date: 20140225
  Transmission Date: 20141002
  Serious: No
  Sender: FDA-Public Use
  Company Number: US-AMGEN-USASP2013067072

PATIENT
  Age: 59 Year
  Sex: Female
  Weight: 68.03 kg

DRUGS (7)
  1. ENBREL [Suspect]
     Indication: RHEUMATOID ARTHRITIS
     Dosage: 50 MG, QWK
     Route: 058
     Dates: start: 20130920
  2. ENBREL [Suspect]
     Dosage: UNK
     Route: 065
  3. PLAQUENIL                          /00072602/ [Concomitant]
     Dosage: 200 MG, UNK
  4. VITAMIN D                          /00107901/ [Concomitant]
     Dosage: 400 UNIT, UNK
  5. PRAVASTATIN [Concomitant]
     Dosage: 20 MG, UNK
  6. TRAZODONE [Concomitant]
     Dosage: 150 MG, UNK
  7. ADDERALL [Concomitant]
     Dosage: 20 MG, UNK

REACTIONS (19)
  - Abdominal discomfort [Recovered/Resolved]
  - Fatigue [Unknown]
  - Gastric disorder [Unknown]
  - Arthralgia [Recovered/Resolved]
  - Joint swelling [Unknown]
  - Diarrhoea [Unknown]
  - Skin exfoliation [Not Recovered/Not Resolved]
  - Pruritus generalised [Not Recovered/Not Resolved]
  - Erythema [Not Recovered/Not Resolved]
  - Weight increased [Not Recovered/Not Resolved]
  - Oedema peripheral [Not Recovered/Not Resolved]
  - Abdominal distension [Not Recovered/Not Resolved]
  - Alopecia [Not Recovered/Not Resolved]
  - Rhinorrhoea [Recovered/Resolved]
  - Cough [Recovered/Resolved]
  - Joint stiffness [Recovered/Resolved]
  - Viral infection [Recovered/Resolved]
  - Lymphadenopathy [Not Recovered/Not Resolved]
  - Injection site pain [Unknown]
